FAERS Safety Report 5857389-6 (Version None)
Quarter: 2008Q3

REPORT INFORMATION
  Report Type: 
  Country: None (occurrence: None)
  Receive Date: 20080826
  Receipt Date: 20080813
  Transmission Date: 20090109
  Serious: Yes (Other)
  Sender: FDA-Public Use
  Company Number: AR-JNJCH-2008021476

PATIENT
  Sex: Female

DRUGS (1)
  1. NICOTINE [Suspect]
     Indication: SMOKING CESSATION THERAPY
     Dosage: TEXT:UNSPECIFIED PATCH
     Route: 065

REACTIONS (1)
  - HYPERSENSITIVITY [None]
